FAERS Safety Report 24831118 (Version 8)
Quarter: 2025Q4

REPORT INFORMATION
  Report Type: Spontaneous
  Country: EU (occurrence: EU)
  Receive Date: 20250110
  Receipt Date: 20251017
  Transmission Date: 20260118
  Serious: Yes (Death, Hospitalization)
  Sender: MERCK SHARP & DOHME LLC
  Company Number: None

PATIENT
  Age: 67 Year
  Sex: Male

DRUGS (5)
  1. PEMBROLIZUMAB [Suspect]
     Active Substance: PEMBROLIZUMAB
     Indication: Lung neoplasm malignant
     Dosage: TIME INTERVAL: CYCLICAL: DOSE DESCRIPTION : 139 MILLIGRAM
  2. CARBOPLATIN [Concomitant]
     Active Substance: CARBOPLATIN
     Indication: Metastases to peritoneum
     Dosage: TIME INTERVAL: CYCLICAL: 650 MG, CYCLIC
  3. CARBOPLATIN [Concomitant]
     Active Substance: CARBOPLATIN
     Indication: Metastases to peritoneum
     Dosage: TIME INTERVAL: CYCLICAL: 520 MG, CYCLIC
  4. PEMETREXED [Concomitant]
     Active Substance: PEMETREXED
     Indication: Metastases to liver
     Dosage: TIME INTERVAL: CYCLICAL: 900 MG, CYCLIC
  5. PEMETREXED [Concomitant]
     Active Substance: PEMETREXED
     Indication: Metastases to liver
     Dosage: TIME INTERVAL: CYCLICAL: 675 MG, CYCLIC

REACTIONS (3)
  - Acute hepatic failure [Fatal]
  - Drug-induced liver injury [Fatal]
  - Incorrect dose administered [Unknown]
